FAERS Safety Report 6759867-4 (Version None)
Quarter: 2010Q2

REPORT INFORMATION
  Report Type: 
  Country: None (occurrence: None)
  Receive Date: 20100604
  Receipt Date: 20100524
  Transmission Date: 20101027
  Serious: Yes (Other)
  Sender: FDA-Public Use
  Company Number: 7005953

PATIENT
  Age: 28 Year
  Sex: Female
  Weight: 61 kg

DRUGS (4)
  1. REBIF [Suspect]
     Indication: MULTIPLE SCLEROSIS
     Dosage: 44 MCG, 3 IN 1 WK, SUBCUTANEOUS
     Route: 058
     Dates: start: 20081103, end: 20100501
  2. LAMOTRIGINE [Concomitant]
  3. FLEXERIL [Concomitant]
  4. PRILOSEC (OMEPRAZOLE) [Concomitant]

REACTIONS (8)
  - CERVIX CARCINOMA [None]
  - CONVULSION [None]
  - CYST [None]
  - GENITAL DISORDER FEMALE [None]
  - HEADACHE [None]
  - MOOD SWINGS [None]
  - PARAESTHESIA [None]
  - ULCER [None]
